FAERS Safety Report 4647486-5 (Version None)
Quarter: 2005Q2

REPORT INFORMATION
  Report Type: 
  Country: None (occurrence: None)
  Receive Date: 20050426
  Receipt Date: 20050418
  Transmission Date: 20051028
  Serious: Yes (Life-Threatening, Hospitalization)
  Sender: FDA-Public Use
  Company Number: 230008M05CAN

PATIENT
  Age: 39 Year
  Sex: Female
  Weight: 81.36 kg

DRUGS (4)
  1. REBIF [Suspect]
     Indication: RELAPSING-REMITTING MULTIPLE SCLEROSIS
     Dosage: 22 MCG, 3 IN 1 WEEKS
     Dates: start: 20050310, end: 20050331
  2. NORTRIPTYLINE HCL [Concomitant]
  3. BACLOFEN [Concomitant]
  4. TRIAZOLAM [Concomitant]

REACTIONS (1)
  - ANAPHYLACTIC REACTION [None]
